FAERS Safety Report 8354069-2 (Version None)
Quarter: 2012Q2

REPORT INFORMATION
  Report Type: 
  Country: None (occurrence: None)
  Receive Date: 20120511
  Receipt Date: 20120507
  Transmission Date: 20120825
  Serious: Yes (Death, Hospitalization, Other)
  Sender: FDA-Public Use
  Company Number: US-ASTRAZENECA-2010SE03895

PATIENT
  Age: 83 Year
  Sex: Male

DRUGS (3)
  1. TOPROL-XL [Suspect]
     Route: 048
  2. ATIVAN [Concomitant]
  3. CRESTOR [Suspect]
     Route: 048

REACTIONS (6)
  - RESPIRATORY DISTRESS [None]
  - FLUID RETENTION [None]
  - CHEST PAIN [None]
  - RENAL FAILURE [None]
  - DEATH [None]
  - DIABETES MELLITUS [None]
